FAERS Safety Report 5699081-7 (Version None)
Quarter: 2008Q2

REPORT INFORMATION
  Report Type: 
  Country: None (occurrence: None)
  Receive Date: 20080408
  Receipt Date: 20061115
  Transmission Date: 20081010
  Serious: No
  Sender: FDA-Public Use
  Company Number: US-BAYER-US-2006-035648

PATIENT

DRUGS (2)
  1. FLUDARA [Suspect]
  2. RITUXAN [Suspect]

REACTIONS (1)
  - DYSPHONIA [None]
